FAERS Safety Report 14188753 (Version 3)
Quarter: 2018Q2

REPORT INFORMATION
  Report Type: Spontaneous
  Country: US (occurrence: US)
  Receive Date: 20171114
  Receipt Date: 20180511
  Transmission Date: 20180711
  Serious: No
  Sender: FDA-Public Use
  Company Number: US-AMGEN-USASP2017152043

PATIENT
  Age: 46 Year
  Sex: Male

DRUGS (6)
  1. PARSABIV [Suspect]
     Active Substance: ETELCALCETIDE HYDROCHLORIDE
     Indication: PRODUCT USED FOR UNKNOWN INDICATION
     Dosage: 5 MG, 3 TIMES/WK
     Route: 065
     Dates: start: 20170711
  2. PARSABIV [Suspect]
     Active Substance: ETELCALCETIDE HYDROCHLORIDE
     Dosage: 12.5 MG, 3 TIMES/WK
     Route: 065
     Dates: start: 20170919, end: 20171003
  3. PARSABIV [Suspect]
     Active Substance: ETELCALCETIDE HYDROCHLORIDE
     Dosage: 15 MG, UNK
     Route: 065
     Dates: start: 2017
  4. PARSABIV [Suspect]
     Active Substance: ETELCALCETIDE HYDROCHLORIDE
     Dosage: 7.5 MG, 3 TIMES/WK
     Route: 065
     Dates: start: 20170725
  5. ZEMPLAR [Concomitant]
     Active Substance: PARICALCITOL
     Dosage: 5 MUG, 3 TIMES/WK
     Dates: start: 20170606
  6. PARSABIV [Suspect]
     Active Substance: ETELCALCETIDE HYDROCHLORIDE
     Dosage: 10 MG, 3 TIMES/WK
     Route: 065
     Dates: start: 20170815

REACTIONS (1)
  - Drug ineffective [Recovered/Resolved]

NARRATIVE: CASE EVENT DATE: 2017
